FAERS Safety Report 7141478-2 (Version None)
Quarter: 2010Q4

REPORT INFORMATION
  Report Type: 
  Country: None (occurrence: None)
  Receive Date: 20101207
  Receipt Date: 20101127
  Transmission Date: 20110411
  Serious: Yes (Other)
  Sender: FDA-Public Use
  Company Number: US-PFIZER INC-2010159477

PATIENT
  Sex: Female

DRUGS (1)
  1. GABAPENTIN [Suspect]
     Indication: PERIPHERAL NERVE INJURY
     Dosage: 600 MG, 4X/DAY
     Dates: start: 20100401

REACTIONS (1)
  - GINGIVAL DISORDER [None]
